FAERS Safety Report 5218638-0 (Version None)
Quarter: 2007Q1

REPORT INFORMATION
  Report Type: 
  Country: None (occurrence: None)
  Receive Date: 20070122
  Receipt Date: 20070110
  Transmission Date: 20070707
  Serious: Yes (Life-Threatening)
  Sender: FDA-Public Use
  Company Number: 15500

PATIENT
  Age: 42 Year
  Sex: Female

DRUGS (6)
  1. PACLITAXEL [Suspect]
     Indication: BREAST CANCER
     Dosage: 175 MG/M2 PER_CYCLE
  2. DEXAMETHASONE TAB [Concomitant]
  3. ONDANSETRON [Concomitant]
  4. PEGFILGRASTIM [Concomitant]
  5. MOTILIUM /00498201/ [Concomitant]
  6. LANSOPRAZOLE [Concomitant]

REACTIONS (26)
  - ABDOMINAL DISTENSION [None]
  - ATRIAL FIBRILLATION [None]
  - BLOOD BICARBONATE DECREASED [None]
  - BLOOD PH DECREASED [None]
  - BONE MARROW FAILURE [None]
  - BREAST CANCER RECURRENT [None]
  - CARDIAC ARREST [None]
  - CELLULITIS [None]
  - CEREBRAL INFARCTION [None]
  - CLOSTRIDIAL INFECTION [None]
  - DIABETIC KETOACIDOTIC HYPERGLYCAEMIC COMA [None]
  - DISSEMINATED INTRAVASCULAR COAGULATION [None]
  - FEMALE GENITAL TRACT FISTULA [None]
  - GLASGOW COMA SCALE ABNORMAL [None]
  - HAEMODIALYSIS [None]
  - HAEMOGLOBIN DECREASED [None]
  - HYPOTENSION [None]
  - METASTATIC NEOPLASM [None]
  - MYOCARDIAL INFARCTION [None]
  - NEUROPATHY [None]
  - PANCREATITIS ACUTE [None]
  - PANCREATITIS NECROTISING [None]
  - PCO2 DECREASED [None]
  - PO2 INCREASED [None]
  - RENAL FAILURE [None]
  - SEPSIS [None]
